FAERS Safety Report 12903973 (Version 1)
Quarter: 2016Q4

REPORT INFORMATION
  Report Type: Spontaneous
  Country: US (occurrence: US)
  Receive Date: 20161102
  Receipt Date: 20161102
  Transmission Date: 20170207
  Serious: No
  Sender: FDA-Public Use
  Company Number: ALCN2016US007412

PATIENT
  Age: 2 Year

DRUGS (1)
  1. VIGAMOX [Suspect]
     Active Substance: MOXIFLOXACIN HYDROCHLORIDE
     Indication: CONJUNCTIVITIS
     Dosage: 1 GTT, TID
     Route: 047
     Dates: start: 20161009

REACTIONS (2)
  - Drug administered to patient of inappropriate age [Unknown]
  - Product quality issue [Unknown]

NARRATIVE: CASE EVENT DATE: 20161022
